FAERS Safety Report 13426510 (Version 1)
Quarter: 2017Q2

REPORT INFORMATION
  Report Type: Spontaneous
  Country: US (occurrence: US)
  Receive Date: 20170411
  Receipt Date: 20170411
  Transmission Date: 20170830
  Serious: Yes (Hospitalization)
  Sender: FDA-Public Use
  Company Number: None

PATIENT
  Age: 46 Year
  Sex: Female
  Weight: 183 kg

DRUGS (6)
  1. DAUNORUBICIN [Suspect]
     Active Substance: DAUNORUBICIN
     Dates: end: 20170307
  2. VINCRISTINE SULFATE. [Suspect]
     Active Substance: VINCRISTINE SULFATE
     Dates: end: 20170307
  3. DEXAMETHASONE. [Suspect]
     Active Substance: DEXAMETHASONE
     Dates: end: 20170306
  4. ONCASPAR [Suspect]
     Active Substance: PEGASPARGASE
     Dates: end: 20170303
  5. METHOTREXATE. [Suspect]
     Active Substance: METHOTREXATE
     Dates: end: 20170228
  6. CYTARABINE. [Suspect]
     Active Substance: CYTARABINE
     Dates: end: 20170215

REACTIONS (8)
  - Jaundice [None]
  - Nausea [None]
  - Coagulopathy [None]
  - Oedema peripheral [None]
  - Liver injury [None]
  - Blood albumin decreased [None]
  - Acute kidney injury [None]
  - Constipation [None]

NARRATIVE: CASE EVENT DATE: 20170323
